FAERS Safety Report 5161144-2 (Version None)
Quarter: 2006Q4

REPORT INFORMATION
  Report Type: 
  Country: None (occurrence: None)
  Receive Date: 20061121
  Receipt Date: 20061106
  Transmission Date: 20070319
  Serious: Yes (Other)
  Sender: FDA-Public Use
  Company Number: 2006137482

PATIENT
  Age: 81 Year
  Sex: Male

DRUGS (11)
  1. SOLU-CORTEF [Suspect]
     Indication: PREMEDICATION
     Dosage: INTRAVENOUS
     Route: 042
  2. SOLU-MEDROL [Suspect]
     Indication: PREMEDICATION
     Dosage: INTRAVENOUS
     Route: 042
  3. ALFACALCIDOL [Concomitant]
  4. MUCODYNE (CARBOCISTEINE) [Concomitant]
  5. PREDNISOLONE [Concomitant]
  6. SELBEX (TEPRENONE) [Concomitant]
  7. FAMOTIDINE [Concomitant]
  8. ENALAPRIL MALEATE [Concomitant]
  9. MAGNESIUM OXIDE [Concomitant]
  10. LASIX [Concomitant]
  11. PRIMOBOLAN-DEPOT INJ [Concomitant]

REACTIONS (1)
  - SHOCK [None]
